FAERS Safety Report 5517181-9 (Version None)
Quarter: 2007Q4

REPORT INFORMATION
  Report Type: 
  Country: None (occurrence: None)
  Receive Date: 20071114
  Receipt Date: 20070817
  Transmission Date: 20080405
  Serious: No
  Sender: FDA-Public Use
  Company Number: A0670847A

PATIENT
  Age: 61 Year
  Sex: Female

DRUGS (3)
  1. COMMIT [Suspect]
  2. COMMIT [Suspect]
  3. NICODERM CQ [Suspect]

REACTIONS (7)
  - CRYING [None]
  - ERYTHEMA [None]
  - NAUSEA [None]
  - NERVOUSNESS [None]
  - OEDEMA PERIPHERAL [None]
  - PRURITUS [None]
  - SKIN IRRITATION [None]
